FAERS Safety Report 6728531-X (Version None)
Quarter: 2010Q2

REPORT INFORMATION
  Report Type: 
  Country: None (occurrence: None)
  Receive Date: 20100517
  Receipt Date: 20100511
  Transmission Date: 20101027
  Serious: Yes (Life-Threatening, Hospitalization, Other)
  Sender: FDA-Public Use
  Company Number: JP-ELI_LILLY_AND_COMPANY-JP201005002680

PATIENT
  Sex: Male
  Weight: 61.6 kg

DRUGS (11)
  1. ALIMTA [Suspect]
     Indication: NON-SMALL CELL LUNG CANCER RECURRENT
     Dosage: 500 MG/M2, OTHER
     Route: 042
     Dates: start: 20100315, end: 20100315
  2. PANVITAN [Concomitant]
     Dosage: 1 G, DAILY (1/D)
     Route: 048
     Dates: start: 20100302, end: 20100415
  3. CYANOCOBALAMIN [Concomitant]
     Dosage: 1 MG, OTHER
     Route: 030
     Dates: start: 20100302
  4. SELBEX [Concomitant]
     Indication: GASTRITIS PROPHYLAXIS
     Dosage: 50 MG, 3/D
     Route: 048
     Dates: start: 20041026
  5. GABAPENTIN [Concomitant]
     Indication: CANCER PAIN
     Dosage: 400 MG, 2/D
     Route: 048
     Dates: start: 20090316
  6. GASTER D /JPN/ [Concomitant]
     Indication: GASTRITIS PROPHYLAXIS
     Dosage: 10 MG, DAILY (1/D)
     Route: 048
     Dates: start: 20041222
  7. CALONAL [Concomitant]
     Indication: CANCER PAIN
     Dosage: 200 MG, DAILY (1/D)
     Dates: start: 20100315
  8. OXYCONTIN [Concomitant]
     Indication: CANCER PAIN
     Dosage: 60 MG, 2/D
     Route: 048
  9. DUROTEP [Concomitant]
     Indication: CANCER PAIN
     Dosage: UNK, OTHER
     Route: 062
     Dates: start: 20090413, end: 20100405
  10. OXINORM [Concomitant]
     Indication: CANCER PAIN
     Dosage: 10 MG, AS NEEDED
     Route: 048
     Dates: start: 20100315
  11. MAGMITT [Concomitant]
     Indication: CONSTIPATION PROPHYLAXIS
     Dosage: 330 MG, AS NEEDED
     Route: 048
     Dates: start: 20100315, end: 20100320

REACTIONS (7)
  - DECREASED APPETITE [None]
  - INTERSTITIAL LUNG DISEASE [None]
  - MALIGNANT NEOPLASM PROGRESSION [None]
  - NAUSEA [None]
  - PNEUMONIA [None]
  - RASH [None]
  - VOMITING [None]
